FAERS Safety Report 9601740 (Version 1)
Quarter: 2013Q4

REPORT INFORMATION
  Report Type: Spontaneous
  Country: GB (occurrence: None)
  Receive Date: 20131002
  Receipt Date: 20131002
  Transmission Date: 20140711
  Serious: Yes (Other)
  Sender: FDA-Public Use
  Company Number: ACET20130026

PATIENT
  Age: 20 Year
  Sex: Male

DRUGS (2)
  1. Q-PAP (PARACETAMOL) [Suspect]
     Indication: INTENTIONAL OVERDOSE
     Dosage: 30 TABLETS, ONE DOSE
     Route: 048
  2. FLUOXETINE (FLUOXETINE) [Concomitant]

REACTIONS (6)
  - Intentional overdose [None]
  - Agitation [None]
  - Mydriasis [None]
  - Heart rate increased [None]
  - Toxicity to various agents [None]
  - Transaminases increased [None]
